FAERS Safety Report 5555991-2 (Version None)
Quarter: 2007Q4

REPORT INFORMATION
  Report Type: 
  Country: None (occurrence: None)
  Receive Date: 20071213
  Receipt Date: 20071205
  Transmission Date: 20080405
  Serious: Yes (Other)
  Sender: FDA-Public Use
  Company Number: US-PFIZER INC-2007102135

PATIENT
  Sex: Female

DRUGS (3)
  1. LIPITOR [Suspect]
  2. PREMARIN [Concomitant]
  3. THEOPHYLLINE [Concomitant]

REACTIONS (1)
  - RENAL FAILURE [None]
